FAERS Safety Report 7833178-8 (Version None)
Quarter: 2011Q4

REPORT INFORMATION
  Report Type: 
  Country: None (occurrence: None)
  Receive Date: 20111024
  Receipt Date: 20111013
  Transmission Date: 20120403
  Serious: Yes (Other)
  Sender: FDA-Public Use
  Company Number: JP-JNJFOC-20111003479

PATIENT
  Sex: Female

DRUGS (24)
  1. MARZULENE [Concomitant]
     Indication: OSTEOARTHRITIS
     Route: 048
     Dates: start: 20110714
  2. MOBIC [Concomitant]
     Route: 048
     Dates: start: 20110714
  3. MARZULENE [Concomitant]
     Route: 048
     Dates: start: 20100410
  4. MUCODYNE [Concomitant]
     Indication: BRONCHITIS
     Route: 048
     Dates: start: 20110802
  5. PL GRAN [Concomitant]
     Indication: BRONCHITIS
     Route: 048
     Dates: start: 20110802
  6. LASIX [Concomitant]
     Indication: CARDIAC FAILURE CHRONIC
     Route: 048
     Dates: start: 20100410
  7. FAMOTIDINE [Concomitant]
     Route: 048
     Dates: start: 20110714
  8. RASILEZ [Concomitant]
     Indication: CARDIAC FAILURE CHRONIC
     Route: 048
     Dates: start: 20100410
  9. SPIRIVA [Concomitant]
     Indication: ASTHMA
     Route: 055
     Dates: start: 20110714
  10. CANDESARTAN CILEXETIL [Concomitant]
     Route: 048
     Dates: start: 20100410
  11. BEPRIDIL HYDROCHLORIDE [Concomitant]
     Indication: ATRIAL FIBRILLATION
     Route: 048
     Dates: start: 20110714
  12. ALDACTONE [Concomitant]
     Indication: CARDIAC FAILURE CHRONIC
     Route: 048
     Dates: start: 20100410
  13. ENALAPRIL MALEATE [Concomitant]
     Indication: CARDIAC FAILURE CHRONIC
     Route: 048
     Dates: start: 20100410
  14. CANDESARTAN CILEXETIL [Concomitant]
     Indication: CARDIAC FAILURE CHRONIC
     Route: 048
     Dates: start: 20110714
  15. WARFARIN SODIUM [Concomitant]
     Route: 048
     Dates: start: 20110714
  16. LEVOFLOXACIN [Suspect]
     Indication: BRONCHITIS
     Route: 048
     Dates: start: 20110802
  17. LOXONIN [Concomitant]
     Route: 065
     Dates: start: 20110714
  18. MOBIC [Concomitant]
     Indication: OSTEOARTHRITIS
     Route: 048
     Dates: start: 20100410
  19. RASILEZ [Concomitant]
     Route: 048
     Dates: start: 20110714
  20. FAMOTIDINE [Concomitant]
     Indication: GASTRITIS
     Route: 048
     Dates: start: 20100410
  21. SPIRIVA [Concomitant]
     Route: 055
     Dates: start: 20100410
  22. LASIX [Concomitant]
     Route: 048
     Dates: start: 20110714
  23. BEPRIDIL HYDROCHLORIDE [Concomitant]
     Route: 048
     Dates: start: 20100410
  24. WARFARIN SODIUM [Concomitant]
     Indication: ATRIAL FIBRILLATION
     Route: 048
     Dates: start: 20100410

REACTIONS (3)
  - ABNORMAL BEHAVIOUR [None]
  - SPEECH DISORDER [None]
  - DELIRIUM [None]
